FAERS Safety Report 4303815-3 (Version None)
Quarter: 2004Q1

REPORT INFORMATION
  Report Type: 
  Country: None (occurrence: None)
  Receive Date: 20040224
  Receipt Date: 20040224
  Transmission Date: 20041129
  Serious: Yes (Other)
  Sender: FDA-Public Use
  Company Number: None

PATIENT
  Age: 47 Year
  Sex: Female
  Weight: 95.2554 kg

DRUGS (5)
  1. SINGULAIR [Suspect]
     Indication: ASTHMA
     Dosage: 10 MG PO QD (INTERMITTENTLY)
     Route: 048
     Dates: start: 20030301
  2. SINGULAIR [Suspect]
     Indication: RHINITIS ALLERGIC
     Dosage: 10 MG PO QD (INTERMITTENTLY)
     Route: 048
     Dates: start: 20030301
  3. NORVASC [Concomitant]
  4. FORADIL [Concomitant]
  5. PULMICORT [Concomitant]

REACTIONS (2)
  - MUSCLE CRAMP [None]
  - MYALGIA [None]
